FAERS Safety Report 10170524 (Version 4)
Quarter: 2014Q4

REPORT INFORMATION
  Report Type: Spontaneous
  Country: JP (occurrence: JP)
  Receive Date: 20140513
  Receipt Date: 20141128
  Transmission Date: 20150528
  Serious: Yes (Death)
  Sender: FDA-Public Use
  Company Number: PHHY2014JP057258

PATIENT
  Age: 16 Year
  Sex: Male

DRUGS (2)
  1. EXJADE [Suspect]
     Active Substance: DEFERASIROX
     Indication: IRON OVERLOAD
  2. EXJADE [Suspect]
     Active Substance: DEFERASIROX
     Indication: ACUTE LYMPHOCYTIC LEUKAEMIA
     Dosage: 24 MG/KG, QD
     Route: 048
     Dates: start: 20070101, end: 20130331

REACTIONS (3)
  - Malignant neoplasm progression [Fatal]
  - Acute lymphocytic leukaemia [Fatal]
  - Serum ferritin increased [Unknown]
